FAERS Safety Report 20652865 (Version 1)
Quarter: 2022Q1

REPORT INFORMATION
  Report Type: Spontaneous
  Country: SK (occurrence: SK)
  Receive Date: 20220330
  Receipt Date: 20220330
  Transmission Date: 20220424
  Serious: Yes (Other)
  Sender: FDA-Public Use
  Company Number: SK-Merck Healthcare KGaA-9299683

PATIENT
  Age: 68 Year
  Sex: Male
  Weight: 101 kg

DRUGS (13)
  1. METFORMIN [Suspect]
     Active Substance: METFORMIN HYDROCHLORIDE
     Indication: Type 2 diabetes mellitus
     Dosage: 1 GRAM, (0.5 D)
  2. METFORMIN [Suspect]
     Active Substance: METFORMIN HYDROCHLORIDE
     Dosage: 850 MILLIGRAM, (0.5 D)
  3. METFORMIN [Suspect]
     Active Substance: METFORMIN HYDROCHLORIDE
     Dosage: 850 MILLIGRAM, QD
     Dates: start: 2008
  4. GLIMEPIRIDE [Suspect]
     Active Substance: GLIMEPIRIDE
     Indication: Type 2 diabetes mellitus
     Dosage: UNK, (UNKNOWN DOSE)
     Dates: start: 2014
  5. GLIMEPIRIDE [Suspect]
     Active Substance: GLIMEPIRIDE
     Dosage: 2 MILLIGRAM
     Dates: end: 202002
  6. INSULIN GLARGINE [Suspect]
     Active Substance: INSULIN GLARGINE
     Indication: Type 2 diabetes mellitus
     Dosage: UNK, (300 (UNITS UNSPECIFIED))
     Dates: start: 2014
  7. INSULIN GLARGINE [Suspect]
     Active Substance: INSULIN GLARGINE
     Dosage: 38 INTERNATIONAL UNIT
     Dates: end: 202002
  8. ATORVASTATIN [Concomitant]
     Active Substance: ATORVASTATIN
     Indication: Product used for unknown indication
     Dosage: UNK
  9. INSULIN DEGLUDEC;LIRAGLUTIDE [Concomitant]
     Indication: Type 2 diabetes mellitus
     Dosage: UNK, (THE DOSE OF IDEGLIRA WAS TITRATED A 3 DAYS PLUS 2 UNITS)
  10. INSULIN DEGLUDEC;LIRAGLUTIDE [Concomitant]
     Dosage: 38 INTERNATIONAL UNIT
  11. INSULIN DEGLUDEC;LIRAGLUTIDE [Concomitant]
     Dosage: 34 INTERNATIONAL UNIT
     Dates: start: 202110
  12. INSULIN DEGLUDEC;LIRAGLUTIDE [Concomitant]
     Dosage: 16 INTERNATIONAL UNIT
     Dates: start: 202002
  13. INSULIN DEGLUDEC;LIRAGLUTIDE [Concomitant]
     Dosage: 34 INTERNATIONAL UNIT

REACTIONS (3)
  - Diabetic metabolic decompensation [Recovering/Resolving]
  - Therapeutic response decreased [Unknown]
  - Weight increased [Unknown]

NARRATIVE: CASE EVENT DATE: 20140101
